FAERS Safety Report 4656134-X (Version None)
Quarter: 2005Q2

REPORT INFORMATION
  Report Type: 
  Country: None (occurrence: None)
  Receive Date: 20050505
  Receipt Date: 20050427
  Transmission Date: 20051028
  Serious: Yes (Life-Threatening, Hospitalization)
  Sender: FDA-Public Use
  Company Number: RU-2005-006369

PATIENT
  Age: 73 Year
  Sex: Male
  Weight: 68 kg

DRUGS (5)
  1. FLUDARA I.V. (FLUDARABINE PHOSPHATE) [Suspect]
     Dosage: 44.5 MG, INTRAVENOUS
     Route: 042
     Dates: start: 20050316
  2. CYCLOPHOSPHAMIDE [Suspect]
     Dosage: 445 MG, INTRAVENOUS
     Route: 042
     Dates: start: 20050316
  3. CO-TRIMOXAZOLE (CO-TRIMOXAZOLE) [Suspect]
     Dosage: 480
     Dates: start: 20050316, end: 20050316
  4. ALLOPURINOL [Concomitant]
  5. CLEMASTINE (CLEMASTINE) [Concomitant]

REACTIONS (1)
  - TOXIC EPIDERMAL NECROLYSIS [None]
